FAERS Safety Report 4702266-7 (Version None)
Quarter: 2005Q2

REPORT INFORMATION
  Report Type: 
  Country: None (occurrence: None)
  Receive Date: 20050629
  Receipt Date: 20020502
  Transmission Date: 20051028
  Serious: Yes (Death)
  Sender: FDA-Public Use
  Company Number: PHFR2002GB04419

PATIENT
  Sex: Male

DRUGS (2)
  1. EXELON [Suspect]
     Dosage: 1.5 MG, BID
  2. EXELON [Suspect]
     Dosage: 3 MG, BID

REACTIONS (1)
  - DEATH [None]
